FAERS Safety Report 6719002 (Version 3)
Quarter: 2022Q3

REPORT INFORMATION
  Report Type: Spontaneous
  Country: FR (occurrence: FR)
  Receive Date: 20080805
  Receipt Date: 20220821
  Transmission Date: 20221026
  Serious: Yes (Other)
  Sender: FDA-Public Use
  Company Number: PHHY2008FR15335

PATIENT
  Sex: Male

DRUGS (2)
  1. EXJADE [Interacting]
     Active Substance: DEFERASIROX
  2. TERALITHE [Interacting]
     Active Substance: LITHIUM CARBONATE
     Indication: Bipolar I disorder

REACTIONS (3)
  - Bipolar disorder [None]
  - Therapeutic product effect decreased [Recovering/Resolving]
  - Drug interaction [None]
